FAERS Safety Report 16684597 (Version 23)
Quarter: 2022Q1

REPORT INFORMATION
  Report Type: Report from Study
  Country: US (occurrence: None)
  Receive Date: 20190808
  Receipt Date: 20220322
  Transmission Date: 20220423
  Serious: Yes (Hospitalization)
  Sender: FDA-Public Use
  Company Number: US-EISAI MEDICAL RESEARCH-EC-2019-060374

PATIENT
  Age: 50 Year
  Sex: Female
  Weight: 53.5 kg

DRUGS (19)
  1. LENVATINIB [Suspect]
     Active Substance: LENVATINIB
     Indication: Non-small cell lung cancer
     Route: 048
     Dates: start: 20181120, end: 20190611
  2. LENVATINIB [Suspect]
     Active Substance: LENVATINIB
     Route: 048
     Dates: start: 20190709
  3. PEMBROLIZUMAB [Suspect]
     Active Substance: PEMBROLIZUMAB
     Indication: Non-small cell lung cancer
     Route: 041
     Dates: start: 20181120, end: 20190618
  4. PEMBROLIZUMAB [Suspect]
     Active Substance: PEMBROLIZUMAB
     Route: 041
     Dates: start: 20190709, end: 20190709
  5. PEMETREXED DISODIUM [Suspect]
     Active Substance: PEMETREXED DISODIUM
     Indication: Product used for unknown indication
     Route: 042
     Dates: start: 20190730, end: 20200512
  6. CARBOPLATIN [Suspect]
     Active Substance: CARBOPLATIN
     Indication: Product used for unknown indication
     Route: 042
     Dates: start: 20190730, end: 20200518
  7. GLUCOSAMINE [Concomitant]
     Active Substance: GLUCOSAMINE
     Route: 048
     Dates: start: 20181029, end: 20190803
  8. OXYCODONE [Concomitant]
     Active Substance: OXYCODONE
     Dates: start: 20181101
  9. MOTRIN [Concomitant]
     Active Substance: IBUPROFEN
     Dates: start: 20180725
  10. TYLENOL [Concomitant]
     Active Substance: ACETAMINOPHEN
     Dates: start: 20190305
  11. SYNTHROID [Concomitant]
     Active Substance: LEVOTHYROXINE SODIUM
     Dates: start: 20190326
  12. ZOFRAN [Concomitant]
     Active Substance: ONDANSETRON HYDROCHLORIDE
     Dates: start: 20190515
  13. ELIQUIS [Concomitant]
     Active Substance: APIXABAN
     Dates: start: 20190607
  14. COMPAZINE [Concomitant]
     Active Substance: PROCHLORPERAZINE MALEATE
     Dates: start: 20181029
  15. DILAUDID [Concomitant]
     Active Substance: HYDROMORPHONE HYDROCHLORIDE
     Dates: start: 20190725, end: 20190725
  16. DILAUDID [Concomitant]
     Active Substance: HYDROMORPHONE HYDROCHLORIDE
     Dates: start: 20190725, end: 20190730
  17. LOVENOX [Concomitant]
     Active Substance: ENOXAPARIN SODIUM
     Route: 058
     Dates: start: 20190618, end: 20190919
  18. FOLIC ACID [Concomitant]
     Active Substance: FOLIC ACID
     Dates: start: 20190725
  19. CALCIUM CARBONATE; CHOLECALCIFEROL [Concomitant]
     Dates: start: 20190618

REACTIONS (2)
  - Cerebrovascular accident [Recovering/Resolving]
  - Febrile neutropenia [Recovered/Resolved]

NARRATIVE: CASE EVENT DATE: 20190802
